FAERS Safety Report 23679590 (Version 2)
Quarter: 2024Q3

REPORT INFORMATION
  Report Type: Spontaneous
  Country: PT (occurrence: PT)
  Receive Date: 20240327
  Receipt Date: 20240829
  Transmission Date: 20241016
  Serious: Yes (Other)
  Sender: DAIICHI
  Company Number: None

PATIENT
  Age: 68 Year
  Sex: Male

DRUGS (7)
  1. EDOXABAN TOSYLATE [Suspect]
     Active Substance: EDOXABAN TOSYLATE
     Indication: Cerebrovascular accident prophylaxis
     Dosage: 60 MG, QD (1 TABLET WITH LUNCH)
     Route: 048
     Dates: start: 20240206, end: 20240206
  2. BLAXI [Concomitant]
     Indication: Product used for unknown indication
     Dosage: UNK
     Route: 048
  3. ZANICOR [Concomitant]
     Indication: Product used for unknown indication
     Dosage: 10 MG
     Route: 048
  4. RABEPRAZOLE SODIUM [Concomitant]
     Active Substance: RABEPRAZOLE SODIUM
     Indication: Product used for unknown indication
     Dosage: 20 MG
     Route: 048
  5. ROVEZIX [Concomitant]
     Indication: Product used for unknown indication
     Dosage: 20/10 MG
     Route: 048
  6. MICARDIS [Concomitant]
     Active Substance: TELMISARTAN
     Indication: Product used for unknown indication
     Dosage: 40 MG
     Route: 048
  7. BISOPROLOL FUMARATE [Concomitant]
     Active Substance: BISOPROLOL FUMARATE
     Indication: Product used for unknown indication
     Dosage: 2.5 MG
     Route: 048

REACTIONS (3)
  - Skin irritation [Recovered/Resolved]
  - Skin wound [Recovered/Resolved]
  - Pruritus [Recovered/Resolved]

NARRATIVE: CASE EVENT DATE: 20240206
